FAERS Safety Report 5802304-4 (Version None)
Quarter: 2008Q3

REPORT INFORMATION
  Report Type: 
  Country: None (occurrence: None)
  Receive Date: 20080707
  Receipt Date: 20080624
  Transmission Date: 20090109
  Serious: Yes (Congenital Anomaly, Other)
  Sender: FDA-Public Use
  Company Number: BR-ROCHE-572749

PATIENT
  Sex: Male

DRUGS (1)
  1. ROACUTAN [Suspect]
     Indication: ACNE
     Dates: start: 20010101, end: 20020101

REACTIONS (3)
  - BLINDNESS [None]
  - DEVELOPMENTAL DELAY [None]
  - PREMATURE LABOUR [None]
